FAERS Safety Report 8894002 (Version 1)
Quarter: 2012Q4

REPORT INFORMATION
  Report Type: 
  Country: CA (occurrence: CA)
  Receive Date: 20121107
  Receipt Date: 20121107
  Transmission Date: 20130627
  Serious: Yes (Other)
  Sender: FDA-Public Use
  Company Number: PHMT2005CA00615

PATIENT
  Sex: Female

DRUGS (3)
  1. SANDOSTATIN LAR [Suspect]
     Indication: PANCREATIC NEUROENDOCRINE TUMOUR
     Dosage: 20 mg, QW4
     Dates: start: 20000704
  2. OMEPRAZOLE [Concomitant]
  3. EURO-FER [Concomitant]

REACTIONS (4)
  - Hyperglycaemia [Unknown]
  - Hypotension [Unknown]
  - Blood pressure decreased [Unknown]
  - Vertigo [Unknown]
